FAERS Safety Report 22611296 (Version 1)
Quarter: 2023Q2

REPORT INFORMATION
  Report Type: Spontaneous
  Country: CN (occurrence: None)
  Receive Date: 20230616
  Receipt Date: 20230616
  Transmission Date: 20230722
  Serious: Yes (Other)
  Sender: FDA-Public Use
  Company Number: 2023A136773

PATIENT
  Age: 24851 Day
  Sex: Male
  Weight: 60 kg

DRUGS (6)
  1. BRILINTA [Suspect]
     Active Substance: TICAGRELOR
     Indication: Coronary artery disease
     Route: 048
     Dates: start: 20230522, end: 20230523
  2. ISOSORBIDE MONONITRATE [Concomitant]
     Active Substance: ISOSORBIDE MONONITRATE
     Indication: Coronary artery disease
     Route: 048
     Dates: start: 20230522, end: 20230525
  3. PROPAFENONE HYDROCHLORIDE [Concomitant]
     Active Substance: PROPAFENONE HYDROCHLORIDE
     Indication: Coronary artery disease
     Route: 048
     Dates: start: 20230522, end: 20230525
  4. METOPROLOL TARTRATE [Concomitant]
     Active Substance: METOPROLOL TARTRATE
     Indication: Arrhythmia
     Route: 048
     Dates: start: 20230522, end: 20230525
  5. ASPIRIN [Concomitant]
     Active Substance: ASPIRIN
     Indication: Coronary artery disease
     Route: 048
     Dates: start: 20230522, end: 20230525
  6. ATORVASTATIN CALCIUM [Concomitant]
     Active Substance: ATORVASTATIN CALCIUM
     Indication: Coronary artery disease
     Route: 048
     Dates: start: 20230522, end: 20230525

REACTIONS (3)
  - Asphyxia [Recovering/Resolving]
  - Chest discomfort [Recovering/Resolving]
  - Dyspnoea [Unknown]

NARRATIVE: CASE EVENT DATE: 20230523
